FAERS Safety Report 10200390 (Version 1)
Quarter: 2014Q2

REPORT INFORMATION
  Report Type: Spontaneous
  Country: TR (occurrence: TR)
  Receive Date: 20140528
  Receipt Date: 20140528
  Transmission Date: 20141212
  Serious: Yes (Hospitalization)
  Sender: FDA-Public Use
  Company Number: TR-UCBSA-122087

PATIENT
  Age: 30 Month
  Sex: 0

DRUGS (2)
  1. KEPPRA [Suspect]
     Dosage: 2X20 ML
     Route: 048
  2. VALPROATE [Concomitant]

REACTIONS (6)
  - Respiratory depression [Recovered/Resolved]
  - Aspiration [Recovered/Resolved]
  - Somnolence [Recovered/Resolved]
  - Dizziness [Recovered/Resolved]
  - Vomiting [Recovered/Resolved]
  - Accidental overdose [Recovered/Resolved]
